FAERS Safety Report 7575098-2 (Version None)
Quarter: 2011Q2

REPORT INFORMATION
  Report Type: 
  Country: None (occurrence: None)
  Receive Date: 20110627
  Receipt Date: 20110623
  Transmission Date: 20111010
  Serious: Yes (Other)
  Sender: FDA-Public Use
  Company Number: DK-PFIZER INC-2011017000

PATIENT
  Age: 19 Year
  Sex: Female
  Weight: 58 kg

DRUGS (2)
  1. HARMONET [Interacting]
     Indication: CONTRACEPTION
     Dosage: UNK
     Route: 048
     Dates: start: 20090603
  2. VARENICLINE TARTRATE [Suspect]
     Indication: SMOKING CESSATION THERAPY
     Dosage: 1 DF, 3X/DAY
     Route: 048
     Dates: start: 20101124, end: 20110105

REACTIONS (4)
  - DRUG INTERACTION [None]
  - DRUG INEFFECTIVE [None]
  - BLIGHTED OVUM [None]
  - UNINTENDED PREGNANCY [None]
